FAERS Safety Report 23337845 (Version 1)
Quarter: 2023Q4

REPORT INFORMATION
  Report Type: Spontaneous
  Country: US (occurrence: US)
  Receive Date: 20231226
  Receipt Date: 20231226
  Transmission Date: 20240110
  Serious: No
  Sender: FDA-Public Use
  Company Number: US-JNJFOC-20231212254

PATIENT
  Sex: Female

DRUGS (1)
  1. PEPCID AC [Suspect]
     Active Substance: FAMOTIDINE
     Indication: Gastrooesophageal reflux disease
     Route: 065

REACTIONS (5)
  - Gastrooesophageal reflux disease [Recovering/Resolving]
  - Skin burning sensation [Recovering/Resolving]
  - Headache [Recovering/Resolving]
  - Neck pain [Recovering/Resolving]
  - Burning sensation [Recovering/Resolving]
